FAERS Safety Report 16023877 (Version 7)
Quarter: 2020Q4

REPORT INFORMATION
  Report Type: Report from Study
  Country: US (occurrence: US)
  Receive Date: 20190301
  Receipt Date: 20201223
  Transmission Date: 20210113
  Serious: Yes (Other)
  Sender: FDA-Public Use
  Company Number: PHEH2019US008277

PATIENT
  Sex: Male

DRUGS (2)
  1. XANAX [Concomitant]
     Active Substance: ALPRAZOLAM
     Indication: PRODUCT USED FOR UNKNOWN INDICATION
     Dosage: UNK
     Route: 065
  2. COSENTYX [Suspect]
     Active Substance: SECUKINUMAB
     Indication: PSORIATIC ARTHROPATHY
     Dosage: 300 MG, QMO
     Route: 058

REACTIONS (17)
  - Psoriatic arthropathy [Unknown]
  - Chest discomfort [Unknown]
  - Anxiety [Unknown]
  - Erythema [Unknown]
  - Pruritus [Unknown]
  - Headache [Unknown]
  - Pain of skin [Unknown]
  - Influenza like illness [Unknown]
  - Product dose omission issue [Unknown]
  - Product storage error [Unknown]
  - Blood pressure increased [Recovering/Resolving]
  - Skin mass [Unknown]
  - Dyspnoea [Unknown]
  - Chest pain [Unknown]
  - Dyspepsia [Unknown]
  - Dizziness [Unknown]
  - Angina pectoris [Unknown]
